FAERS Safety Report 10462222 (Version 1)
Quarter: 2014Q3

REPORT INFORMATION
  Report Type: Spontaneous
  Country: US (occurrence: US)
  Receive Date: 20140918
  Receipt Date: 20140918
  Transmission Date: 20150326
  Serious: Yes (Other)
  Sender: FDA-Public Use
  Company Number: US-GLAXOSMITHKLINE-A1089584A

PATIENT
  Age: 60 Year
  Sex: Male

DRUGS (1)
  1. ADVAIR HFA [Suspect]
     Active Substance: FLUTICASONE PROPIONATE\SALMETEROL XINAFOATE
     Route: 065

REACTIONS (3)
  - Spinal cord injury cervical [Unknown]
  - Joint injury [Unknown]
  - Fall [Unknown]

NARRATIVE: CASE EVENT DATE: 201401
